FAERS Safety Report 20772918 (Version 1)
Quarter: 2022Q2

REPORT INFORMATION
  Report Type: Spontaneous
  Country: CN (occurrence: CN)
  Receive Date: 20220502
  Receipt Date: 20220502
  Transmission Date: 20220721
  Serious: Yes (Hospitalization, Other)
  Sender: FDA-Public Use
  Company Number: CN-LUPIN PHARMACEUTICALS INC.-2022-06306

PATIENT
  Age: 39 Year
  Sex: Female

DRUGS (4)
  1. RIFAMPIN [Suspect]
     Active Substance: RIFAMPIN
     Indication: Tuberculous pleurisy
     Dosage: 0.45 GRAM, QD (QUADRUPLE ANTITUBERCULOSIS TREATMENT)
     Route: 065
     Dates: start: 201812
  2. ETHAMBUTOL [Suspect]
     Active Substance: ETHAMBUTOL HYDROCHLORIDE
     Indication: Tuberculous pleurisy
     Dosage: 0.75 GRAM, QD (QUADRUPLE ANTITUBERCULOSIS TREATMENT)
     Route: 065
     Dates: start: 201812
  3. PYRAZINAMIDE [Suspect]
     Active Substance: PYRAZINAMIDE
     Indication: Tuberculous pleurisy
     Dosage: 1.5 GRAM, QD (QUADRUPLE ANTITUBERCULOSIS TREATMENT)
     Route: 065
     Dates: start: 201812
  4. ISONIAZID [Suspect]
     Active Substance: ISONIAZID
     Indication: Tuberculous pleurisy
     Dosage: 0.3 GRAM, QD (QUADRUPLE ANTITUBERCULOSIS TREATMENT)
     Route: 065
     Dates: start: 201812

REACTIONS (4)
  - Drug-induced liver injury [Recovering/Resolving]
  - Myopathy [Recovering/Resolving]
  - Muscle strength abnormal [Recovering/Resolving]
  - Oedema peripheral [Recovered/Resolved]

NARRATIVE: CASE EVENT DATE: 20190101
